FAERS Safety Report 5586565-5 (Version None)
Quarter: 2008Q1

REPORT INFORMATION
  Report Type: 
  Country: None (occurrence: None)
  Receive Date: 20080110
  Receipt Date: 20071109
  Transmission Date: 20080703
  Serious: Yes (Other)
  Sender: FDA-Public Use
  Company Number: BR-BAYER-BR-2007-042846

PATIENT
  Age: 22 Year
  Sex: Female
  Weight: 51 kg

DRUGS (3)
  1. YAZ [Suspect]
     Indication: ORAL CONTRACEPTION
     Route: 048
     Dates: start: 20070701, end: 20071108
  2. VITAMIN A [Concomitant]
  3. VITAMIN B [Concomitant]

REACTIONS (1)
  - THROMBOSIS [None]
